FAERS Safety Report 6310566-2 (Version None)
Quarter: 2009Q3

REPORT INFORMATION
  Report Type: 
  Country: None (occurrence: None)
  Receive Date: 20090811
  Receipt Date: 20090611
  Transmission Date: 20100115
  Serious: No
  Sender: FDA-Public Use
  Company Number: 1000006763

PATIENT
  Age: 49 Year
  Sex: Female

DRUGS (13)
  1. SAVELLA [Suspect]
     Indication: COMPLEX REGIONAL PAIN SYNDROME
     Dosage: SEE IMAGE
     Route: 048
     Dates: start: 20090603, end: 20090603
  2. SAVELLA [Suspect]
     Indication: COMPLEX REGIONAL PAIN SYNDROME
     Dosage: SEE IMAGE
     Route: 048
     Dates: start: 20090604, end: 20090605
  3. SAVELLA [Suspect]
     Indication: COMPLEX REGIONAL PAIN SYNDROME
     Dosage: SEE IMAGE
     Route: 048
     Dates: start: 20090606, end: 20090609
  4. SAVELLA [Suspect]
     Indication: COMPLEX REGIONAL PAIN SYNDROME
     Dosage: SEE IMAGE
     Route: 048
     Dates: start: 20090610
  5. ASACOL [Concomitant]
  6. COLESTIPOL HYDROCHLORIDE [Concomitant]
  7. LYRICA [Concomitant]
  8. NEFAZODONE HCL [Concomitant]
  9. ZYRTEC [Concomitant]
  10. ESTRADIOL [Concomitant]
  11. CARVEDILOL [Concomitant]
  12. LIPITOR [Concomitant]
  13. SINGULAIR [Concomitant]

REACTIONS (1)
  - URTICARIA [None]
